FAERS Safety Report 17070961 (Version 7)
Quarter: 2020Q1

REPORT INFORMATION
  Report Type: Report from Study
  Country: JP (occurrence: JP)
  Receive Date: 20191125
  Receipt Date: 20200207
  Transmission Date: 20200409
  Serious: Yes (Hospitalization)
  Sender: FDA-Public Use
  Company Number: JP-EISAI MEDICAL RESEARCH-EC-2019-065851

PATIENT
  Age: 78 Year
  Sex: Male
  Weight: 83.6 kg

DRUGS (20)
  1. PEMBROLIZUMAB. [Suspect]
     Active Substance: PEMBROLIZUMAB
     Indication: HEPATOCELLULAR CARCINOMA
     Route: 041
     Dates: start: 20190702, end: 20190702
  2. PEMBROLIZUMAB. [Suspect]
     Active Substance: PEMBROLIZUMAB
     Route: 041
     Dates: start: 20200114
  3. RIFXIMA [Concomitant]
     Active Substance: RIFAXIMIN
     Dates: start: 20190706
  4. AMLODIPINE [Concomitant]
     Active Substance: AMLODIPINE BESYLATE
     Dates: start: 20190709, end: 20191120
  5. PEMBROLIZUMAB. [Suspect]
     Active Substance: PEMBROLIZUMAB
     Route: 041
     Dates: start: 20190821, end: 20191224
  6. MEVALOTIN [Concomitant]
     Active Substance: PRAVASTATIN SODIUM
     Dates: start: 200901
  7. FEBURIC [Concomitant]
     Active Substance: FEBUXOSTAT
     Dates: start: 200901
  8. LENVATINIB [Suspect]
     Active Substance: LENVATINIB
     Indication: HEPATOCELLULAR CARCINOMA
     Dosage: STARTING DOSE AT 12 MILLIGRAM, QD; FLUCTUATED DOSAGE
     Route: 048
     Dates: start: 20190702, end: 20190730
  9. LENVATINIB [Suspect]
     Active Substance: LENVATINIB
     Route: 048
     Dates: start: 20190731, end: 20190819
  10. PEMBROLIZUMAB. [Suspect]
     Active Substance: PEMBROLIZUMAB
     Route: 041
     Dates: start: 20190731, end: 20190731
  11. TELMISARTAN. [Concomitant]
     Active Substance: TELMISARTAN
     Dates: start: 199101, end: 20191110
  12. GASTER [Concomitant]
     Active Substance: FAMOTIDINE
     Dates: start: 200901
  13. SPIRONOLACTONE. [Concomitant]
     Active Substance: SPIRONOLACTONE
     Dates: start: 20190730, end: 20191120
  14. LENVATINIB [Suspect]
     Active Substance: LENVATINIB
     Dosage: STARTING DOSE AT 8 MILLIGRAM, QD; FLUCTUATED DOSAGE
     Route: 048
     Dates: start: 20190821
  15. HIRUDOID [Concomitant]
     Active Substance: GLYCOSAMINOGLYCANS
     Dates: start: 20190703
  16. URSA [Concomitant]
     Active Substance: URSODIOL
     Dates: start: 200901
  17. KERATINAMIN [Concomitant]
     Active Substance: UREA
     Dates: start: 20190703
  18. L CARTIN FF [Concomitant]
     Active Substance: LEVOCARNITINE
     Dates: start: 20190706
  19. FUROSEMIDE. [Concomitant]
     Active Substance: FUROSEMIDE
     Dates: start: 20190730, end: 20190903
  20. ANPLAG [Concomitant]
     Active Substance: SARPOGRELATE
     Dates: start: 200301

REACTIONS (1)
  - Decreased appetite [Recovered/Resolved]

NARRATIVE: CASE EVENT DATE: 20190814
